FAERS Safety Report 20926752 (Version 1)
Quarter: 2022Q2

REPORT INFORMATION
  Report Type: Spontaneous
  Country: US (occurrence: US)
  Receive Date: 20220607
  Receipt Date: 20220607
  Transmission Date: 20220721
  Serious: Yes (Other)
  Sender: FDA-Public Use
  Company Number: US-AMGEN-USASP2022095727

PATIENT
  Age: 43 Year
  Sex: Male

DRUGS (2)
  1. SENSIPAR [Suspect]
     Active Substance: CINACALCET HYDROCHLORIDE
     Indication: Hyperparathyroidism
     Dosage: 60 MILLIGRAM, Q12H
     Route: 065
  2. PHOSPHORUS [Concomitant]
     Active Substance: PHOSPHORUS
     Dosage: UNK

REACTIONS (3)
  - Seizure [Recovered/Resolved]
  - Blood phosphorus decreased [Unknown]
  - Blood disorder [Unknown]
